FAERS Safety Report 7743049-3 (Version None)
Quarter: 2011Q3

REPORT INFORMATION
  Report Type: 
  Country: None (occurrence: None)
  Receive Date: 20110901
  Receipt Date: 20110822
  Transmission Date: 20111222
  Serious: Yes (Hospitalization, Disabling, Other)
  Sender: FDA-Public Use
  Company Number: 2011SP012499

PATIENT
  Age: 28 Year
  Sex: Female
  Weight: 101.1521 kg

DRUGS (3)
  1. HYDROXYCUT [Concomitant]
  2. SYNTHROID [Concomitant]
  3. NUVARING [Suspect]
     Indication: CONTRACEPTION
     Dates: start: 20090114, end: 20090710

REACTIONS (8)
  - ANKLE FRACTURE [None]
  - OEDEMA [None]
  - DEEP VEIN THROMBOSIS [None]
  - PLEURISY [None]
  - EMOTIONAL DISORDER [None]
  - MENTAL DISORDER [None]
  - SINUS ARRHYTHMIA [None]
  - SKIN INFECTION [None]
